FAERS Safety Report 24392470 (Version 1)
Quarter: 2024Q4

REPORT INFORMATION
  Report Type: Spontaneous
  Country: MY (occurrence: MY)
  Receive Date: 20241003
  Receipt Date: 20241003
  Transmission Date: 20250115
  Serious: Yes (Death, Other)
  Sender: ALEXION PHARMACEUTICALS
  Company Number: MY-AstraZeneca-CH-00709894A

PATIENT
  Age: 89 Year

DRUGS (4)
  1. IRESSA [Suspect]
     Active Substance: GEFITINIB
     Indication: Non-small cell lung cancer
  2. IRESSA [Suspect]
     Active Substance: GEFITINIB
  3. IRESSA [Suspect]
     Active Substance: GEFITINIB
  4. IRESSA [Suspect]
     Active Substance: GEFITINIB

REACTIONS (1)
  - Death [Fatal]
